FAERS Safety Report 5625999-7 (Version None)
Quarter: 2008Q1

REPORT INFORMATION
  Report Type: 
  Country: None (occurrence: None)
  Receive Date: 20080214
  Receipt Date: 20080207
  Transmission Date: 20080703
  Serious: Yes (Other)
  Sender: FDA-Public Use
  Company Number: PHHY2008JP01062

PATIENT
  Age: 69 Year
  Sex: Female

DRUGS (5)
  1. NEORAL [Suspect]
     Indication: DERMATOMYOSITIS
     Dosage: 100 MG/DAY
     Route: 048
     Dates: start: 20050901, end: 20050901
  2. NEORAL [Suspect]
     Dosage: 150 MG/DAY
     Route: 048
     Dates: start: 20050901, end: 20051003
  3. PREDNISOLONE [Concomitant]
     Dosage: 40 MG, UNK
     Route: 048
     Dates: start: 20050801, end: 20050901
  4. IMMUNE GLOBULIN INTRAVENOUS (HUMAN) [Concomitant]
     Dosage: 20 G, UNK
     Route: 065
  5. METHYLPREDNISOLONE [Concomitant]
     Dosage: 500 MG, UNK
     Route: 042

REACTIONS (1)
  - PANCYTOPENIA [None]
